FAERS Safety Report 8372416-2 (Version None)
Quarter: 2012Q2

REPORT INFORMATION
  Report Type: 
  Country: None (occurrence: None)
  Receive Date: 20120521
  Receipt Date: 20120515
  Transmission Date: 20120825
  Serious: Yes (Hospitalization)
  Sender: FDA-Public Use
  Company Number: ZA-SANOFI-AVENTIS-2012SA034235

PATIENT
  Age: 39 Year
  Sex: Male

DRUGS (3)
  1. GLUCOPHAGE [Concomitant]
     Indication: TYPE 2 DIABETES MELLITUS
     Route: 048
     Dates: start: 20100601
  2. LANTUS [Suspect]
     Indication: TYPE 2 DIABETES MELLITUS
     Route: 058
     Dates: start: 20100601
  3. SOLOSTAR [Suspect]
     Indication: DEVICE THERAPY
     Dates: start: 20100601

REACTIONS (1)
  - NEPHROLITHIASIS [None]
